FAERS Safety Report 10522496 (Version 1)
Quarter: 2014Q4

REPORT INFORMATION
  Report Type: Report from Study
  Country: US (occurrence: US)
  Receive Date: 20141016
  Receipt Date: 20141016
  Transmission Date: 20150528
  Serious: Yes (Hospitalization)
  Sender: FDA-Public Use
  Company Number: US-BRISTOL-MYERS SQUIBB COMPANY-21481809

PATIENT
  Age: 78 Year
  Sex: Male
  Weight: 122.1 kg

DRUGS (1)
  1. IPILIMUMAB [Suspect]
     Active Substance: IPILIMUMAB
     Indication: MALIGNANT MELANOMA
     Dosage: LST DOSE:26AUG14,T.DOSE:1286MG?IND T(C1-4):10MG/KG,90MN ON D1?M T(C-5+):10MG/KG,90MN ON D1 Q12 WK
     Route: 042
     Dates: start: 20110412

REACTIONS (2)
  - Embolic stroke [Recovering/Resolving]
  - Ventricular tachycardia [Unknown]

NARRATIVE: CASE EVENT DATE: 2014
